FAERS Safety Report 16114910 (Version 1)
Quarter: 2019Q1

REPORT INFORMATION
  Report Type: Spontaneous
  Country: FR (occurrence: FR)
  Receive Date: 20190325
  Receipt Date: 20190325
  Transmission Date: 20190418
  Serious: Yes (Other)
  Sender: FDA-Public Use
  Company Number: FR-PFIZER INC-2019123483

PATIENT
  Age: 1010 Month
  Sex: Female

DRUGS (3)
  1. IBRANCE [Suspect]
     Active Substance: PALBOCICLIB
     Indication: NEOPLASM MALIGNANT
     Dosage: UNK
     Route: 048
  2. FASLODEX [Suspect]
     Active Substance: FULVESTRANT
     Indication: BREAST CANCER METASTATIC
     Dosage: 500 MG, UNK
     Route: 030
  3. LYSANXIA [Concomitant]
     Active Substance: PRAZEPAM
     Dosage: UNK

REACTIONS (4)
  - Injection site haematoma [Unknown]
  - Sciatica [Unknown]
  - Injection site pain [Unknown]
  - Induration [Unknown]

NARRATIVE: CASE EVENT DATE: 201902
